FAERS Safety Report 25446042 (Version 1)
Quarter: 2025Q2

REPORT INFORMATION
  Report Type: Spontaneous
  Country: JP (occurrence: JP)
  Receive Date: 20250617
  Receipt Date: 20250617
  Transmission Date: 20250717
  Serious: Yes (Hospitalization, Other)
  Sender: MERCK SHARP & DOHME LLC
  Company Number: None

PATIENT
  Age: 67 Year
  Sex: Male
  Weight: 67.7 kg

DRUGS (10)
  1. KEYTRUDA [Suspect]
     Active Substance: PEMBROLIZUMAB
     Indication: Malignant neoplasm of renal pelvis
     Route: 041
     Dates: start: 20241203, end: 20241203
  2. PADCEV [Suspect]
     Active Substance: ENFORTUMAB VEDOTIN-EJFV
     Indication: Malignant neoplasm of renal pelvis
     Route: 041
     Dates: start: 20241203, end: 20241210
  3. FEBUXOSTAT [Concomitant]
     Active Substance: FEBUXOSTAT
     Dosage: DOSE DESCRIPTION : 10 MILLIGRAM, QD?DAILY DOSE : 10 MILLIGRAM, AFTER BREAKFAST
     Route: 048
     Dates: start: 20240917
  4. EZETIMIBE [Concomitant]
     Active Substance: EZETIMIBE
     Dosage: DOSE DESCRIPTION : 10 MILLIGRAM, QD?DAILY DOSE : 10 MILLIGRAM, AFTER BREAKFAST
     Route: 065
  5. CRESTOR [Concomitant]
     Active Substance: ROSUVASTATIN CALCIUM
     Dosage: DOSE DESCRIPTION : 2.5 MILLIGRAM, QD?DAILY DOSE : 2.5 MILLIGRAM, AFTER BREAKFAST
     Route: 048
  6. ASPIRIN [Concomitant]
     Active Substance: ASPIRIN
     Dosage: DOSE DESCRIPTION : 100 MILLIGRAM, QD?DAILY DOSE : 100 MILLIGRAM, AFTER BREAKFAST
     Route: 048
  7. ESOMEPRAZOLE MAGNESIUM [Concomitant]
     Active Substance: ESOMEPRAZOLE MAGNESIUM
     Dosage: DOSE DESCRIPTION : 10 MILLIGRAM, QD?DAILY DOSE : 10 MILLIGRAM, AFTER BREAKFAST
     Route: 048
  8. CLOPIDOGREL BISULFATE [Concomitant]
     Active Substance: CLOPIDOGREL BISULFATE
     Dosage: DOSE DESCRIPTION : 75 MILLIGRAM, QD?DAILY DOSE : 75 MILLIGRAM, AFTER BREAKFAST
     Route: 048
  9. NIFEDIPINE [Concomitant]
     Active Substance: NIFEDIPINE
     Dosage: DOSE DESCRIPTION : 20 MILLIGRAM, QD?DAILY DOSE : 20 MILLIGRAM, AFTER BREAKFAST
     Route: 048
  10. TENORMIN [Concomitant]
     Active Substance: ATENOLOL
     Dosage: DOSE DESCRIPTION : 25, QD, AFTER BREAKFAST
     Route: 048

REACTIONS (1)
  - Immune-mediated hepatic disorder [Recovering/Resolving]

NARRATIVE: CASE EVENT DATE: 20241216
